FAERS Safety Report 4824472-3 (Version None)
Quarter: 2005Q4

REPORT INFORMATION
  Report Type: 
  Country: None (occurrence: None)
  Receive Date: 20051108
  Receipt Date: 20051024
  Transmission Date: 20060501
  Serious: Yes (Disabling)
  Sender: FDA-Public Use
  Company Number: JP_051007952

PATIENT
  Age: 31 Year
  Sex: Female
  Weight: 52 kg

DRUGS (2)
  1. GEMZAR [Suspect]
     Indication: LUNG ADENOCARCINOMA
     Dosage: 1500 MG OTHER
     Route: 050
     Dates: start: 20050826, end: 20050826
  2. CISPLATIN [Concomitant]

REACTIONS (4)
  - NAUSEA [None]
  - NEPHROTIC SYNDROME [None]
  - VOMITING [None]
  - WHITE BLOOD CELL COUNT DECREASED [None]
